FAERS Safety Report 6280719-0 (Version None)
Quarter: 2009Q3

REPORT INFORMATION
  Report Type: 
  Country: None (occurrence: None)
  Receive Date: 20090724
  Receipt Date: 20090108
  Transmission Date: 20100115
  Serious: No
  Sender: FDA-Public Use
  Company Number: A0759482A

PATIENT
  Age: 62 Year
  Sex: Female

DRUGS (5)
  1. AVANDIA [Suspect]
     Dosage: 4MG PER DAY
     Route: 048
     Dates: end: 20081101
  2. COREG CR [Concomitant]
  3. PLAVIX [Concomitant]
  4. MOBIC [Concomitant]
  5. SYNTHROID [Concomitant]

REACTIONS (1)
  - CHEST DISCOMFORT [None]
